FAERS Safety Report 13091714 (Version 1)
Quarter: 2017Q1

REPORT INFORMATION
  Report Type: Spontaneous
  Country: TR (occurrence: TR)
  Receive Date: 20170106
  Receipt Date: 20170106
  Transmission Date: 20170428
  Serious: Yes (Hospitalization)
  Sender: FDA-Public Use
  Company Number: TR-INDOCO-000018

PATIENT
  Age: 3 Month
  Sex: Male

DRUGS (1)
  1. BRIMONIDINE [Suspect]
     Active Substance: BRIMONIDINE TARTRATE
     Indication: NASAL CONGESTION
     Dosage: 1 CC
     Route: 045

REACTIONS (12)
  - Coma [Recovered/Resolved]
  - Depressed level of consciousness [Recovered/Resolved]
  - Cyanosis [Recovered/Resolved]
  - Hypothermia [Recovered/Resolved]
  - Respiratory arrest [Recovered/Resolved]
  - Incorrect route of drug administration [Recovered/Resolved]
  - Hypotension [Recovered/Resolved]
  - Toxicity to various agents [Recovered/Resolved]
  - Hypotonia [Recovered/Resolved]
  - Sinus tachycardia [Recovered/Resolved]
  - Miosis [Recovered/Resolved]
  - Bladder pain [Recovered/Resolved]
